FAERS Safety Report 25623328 (Version 2)
Quarter: 2025Q3

REPORT INFORMATION
  Report Type: Spontaneous
  Country: JP (occurrence: JP)
  Receive Date: 20250730
  Receipt Date: 20250808
  Transmission Date: 20251020
  Serious: No
  Sender: PFIZER
  Company Number: JP-PFIZER INC-PV202500087634

PATIENT
  Age: 13 Year
  Sex: Male

DRUGS (1)
  1. NGENLA [Suspect]
     Active Substance: SOMATROGON-GHLA
     Indication: Growth hormone deficiency
     Dosage: 30 MG, WEEKLY
     Route: 058
     Dates: start: 20250625, end: 202507

REACTIONS (1)
  - Patient-device incompatibility [Unknown]

NARRATIVE: CASE EVENT DATE: 20250625
